FAERS Safety Report 8954054 (Version 2)
Quarter: 2013Q2

REPORT INFORMATION
  Report Type: Spontaneous
  Country: US (occurrence: US)
  Receive Date: 20121207
  Receipt Date: 20130604
  Transmission Date: 20140414
  Serious: Yes (Hospitalization, Disabling)
  Sender: FDA-Public Use
  Company Number: US-BAYER-2012-126130

PATIENT
  Age: 23 Year
  Sex: Female
  Weight: 92 kg

DRUGS (9)
  1. YASMIN [Suspect]
     Indication: CONTRACEPTION
     Dosage: UNK
     Dates: start: 20050630, end: 20060623
  2. YASMIN [Suspect]
     Indication: MOOD SWINGS
  3. PHENTERMINE [Concomitant]
  4. UNASYN [Concomitant]
     Dosage: 3 G, QID
     Route: 042
  5. GENTAMICIN [Concomitant]
     Dosage: 80 MG, TID
     Route: 042
  6. CEFTRIAXONE [Concomitant]
  7. DOXYCYCLINE [Concomitant]
  8. PROTONIX [Concomitant]
  9. CIPROFLOXACIN [Concomitant]

REACTIONS (16)
  - Cerebrovascular accident [Recovered/Resolved with Sequelae]
  - Basal ganglia infarction [Recovered/Resolved with Sequelae]
  - Cerebral infarction [Recovered/Resolved with Sequelae]
  - Deep vein thrombosis [None]
  - Hemiparesis [Recovered/Resolved with Sequelae]
  - Headache [Recovered/Resolved with Sequelae]
  - Memory impairment [Recovered/Resolved with Sequelae]
  - Motor dysfunction [Recovered/Resolved with Sequelae]
  - Mobility decreased [Recovered/Resolved with Sequelae]
  - Cerebrovascular accident [Recovered/Resolved with Sequelae]
  - Injury [None]
  - Pain [None]
  - General physical health deterioration [None]
  - Anxiety [None]
  - Emotional distress [None]
  - Pain [None]
